FAERS Safety Report 18064174 (Version 3)
Quarter: 2020Q3

REPORT INFORMATION
  Report Type: Spontaneous
  Country: US (occurrence: US)
  Receive Date: 20200724
  Receipt Date: 20200812
  Transmission Date: 20201103
  Serious: No
  Sender: FDA-Public Use
  Company Number: US-NOVEN PHARMACEUTICALS, INC.-2020US003987

PATIENT
  Age: 14 Year
  Sex: Male

DRUGS (4)
  1. DAYTRANA [Suspect]
     Active Substance: METHYLPHENIDATE
     Indication: ATTENTION DEFICIT HYPERACTIVITY DISORDER
     Dosage: 30 MG, 8 HOURS PER DAY
     Route: 062
     Dates: start: 2018, end: 202003
  2. DAYTRANA [Suspect]
     Active Substance: METHYLPHENIDATE
     Dosage: 30 MG, 8 HOURS PER DAY
     Route: 062
     Dates: start: 202003
  3. PROZAC [Concomitant]
     Active Substance: FLUOXETINE HYDROCHLORIDE
     Indication: ANXIETY
     Dosage: 20 MG, DAILY
     Route: 048
     Dates: start: 2019
  4. FOCALIN [Concomitant]
     Active Substance: DEXMETHYLPHENIDATE HYDROCHLORIDE
     Indication: ATTENTION DEFICIT HYPERACTIVITY DISORDER
     Dosage: 10 MG, DAILY
     Route: 048
     Dates: start: 2018

REACTIONS (2)
  - Depression [Unknown]
  - Intentional self-injury [Recovered/Resolved]

NARRATIVE: CASE EVENT DATE: 201906
